FAERS Safety Report 7980001-7 (Version None)
Quarter: 2011Q4

REPORT INFORMATION
  Report Type: 
  Country: None (occurrence: None)
  Receive Date: 20111214
  Receipt Date: 20111205
  Transmission Date: 20120403
  Serious: Yes (Other)
  Sender: FDA-Public Use
  Company Number: PHHY2011BR106580

PATIENT
  Sex: Female

DRUGS (1)
  1. EXFORGE [Suspect]
     Dosage: 1 DF, (160/10 MG)

REACTIONS (4)
  - CRYING [None]
  - HYPERTENSION [None]
  - WEIGHT INCREASED [None]
  - DEMENTIA ALZHEIMER'S TYPE [None]
